FAERS Safety Report 16639634 (Version 1)
Quarter: 2019Q3

REPORT INFORMATION
  Report Type: Spontaneous
  Country: US (occurrence: US)
  Receive Date: 20190727
  Receipt Date: 20190727
  Transmission Date: 20191004
  Serious: No
  Sender: FDA-Public Use
  Company Number: US-TEVA-2019-US-1083507

PATIENT
  Sex: Male

DRUGS (2)
  1. PRAVASTATIN SODIUM TABLETS TEVA [Suspect]
     Active Substance: PRAVASTATIN SODIUM
     Route: 065
     Dates: end: 201904
  2. PRAVASTATIN CITRON PHARMA [Suspect]
     Active Substance: PRAVASTATIN
     Route: 065

REACTIONS (1)
  - Back pain [Recovered/Resolved]

NARRATIVE: CASE EVENT DATE: 201904
